FAERS Safety Report 7744716-8 (Version None)
Quarter: 2011Q3

REPORT INFORMATION
  Report Type: 
  Country: None (occurrence: None)
  Receive Date: 20110912
  Receipt Date: 20110902
  Transmission Date: 20111222
  Serious: Yes (Other)
  Sender: FDA-Public Use
  Company Number: GB-TEVA-299202ISR

PATIENT
  Age: 76 Year
  Sex: Male

DRUGS (16)
  1. CANDESARTAN CILEXETIL [Suspect]
     Indication: PRODUCT USED FOR UNKNOWN INDICATION
  2. FINASTERIDE [Suspect]
     Indication: PRODUCT USED FOR UNKNOWN INDICATION
     Route: 048
     Dates: start: 20110810
  3. FINASTERIDE [Suspect]
     Route: 048
     Dates: start: 20100219
  4. ASPIRIN [Suspect]
     Indication: PRODUCT USED FOR UNKNOWN INDICATION
     Dates: start: 20110511
  5. TAMSULOSIN HCL [Suspect]
     Indication: PRODUCT USED FOR UNKNOWN INDICATION
     Dosage: 100 MILLIGRAM;
  6. FINASTERIDE [Suspect]
     Route: 048
     Dates: start: 20100616
  7. FINASTERIDE [Suspect]
     Route: 048
     Dates: start: 20100519
  8. SIMVASTATIN [Suspect]
     Indication: PRODUCT USED FOR UNKNOWN INDICATION
     Dosage: 40 MILLIGRAM;
     Dates: start: 20110704
  9. BETA BLOCKING AGENTS [Suspect]
     Indication: PRODUCT USED FOR UNKNOWN INDICATION
  10. FINASTERIDE [Suspect]
     Route: 048
     Dates: start: 20091229
  11. SENNA [Suspect]
     Indication: PRODUCT USED FOR UNKNOWN INDICATION
  12. FINASTERIDE [Suspect]
     Route: 048
     Dates: start: 20100414
  13. FINASTERIDE [Suspect]
     Route: 048
     Dates: start: 20100323
  14. FINASTERIDE [Suspect]
     Route: 048
     Dates: start: 20091127
  15. LOSARTAN POTASSIUM [Suspect]
     Indication: PRODUCT USED FOR UNKNOWN INDICATION
     Dosage: 100 MILLIGRAM;
     Dates: start: 20110713
  16. FINASTERIDE [Suspect]
     Route: 048
     Dates: start: 20100119

REACTIONS (3)
  - LOSS OF CONSCIOUSNESS [None]
  - HAEMATURIA [None]
  - VENTRICULAR EXTRASYSTOLES [None]
